FAERS Safety Report 14835373 (Version 3)
Quarter: 2018Q2

REPORT INFORMATION
  Report Type: Report from Study
  Country: AU (occurrence: AU)
  Receive Date: 20180502
  Receipt Date: 20180531
  Transmission Date: 20180711
  Serious: Yes (Hospitalization)
  Sender: FDA-Public Use
  Company Number: AU-BIOGEN-2018BI00512033

PATIENT
  Age: 27 Year
  Sex: Female

DRUGS (3)
  1. PLEGRIDY [Suspect]
     Active Substance: PEGINTERFERON BETA-1A
     Indication: MULTIPLE SCLEROSIS
     Route: 058
     Dates: start: 20161121
  2. PLEGRIDY [Suspect]
     Active Substance: PEGINTERFERON BETA-1A
     Route: 058
     Dates: start: 20160901, end: 20180510
  3. PLEGRIDY [Suspect]
     Active Substance: PEGINTERFERON BETA-1A
     Route: 058
     Dates: start: 20161127

REACTIONS (7)
  - Pelvic pain [Not Recovered/Not Resolved]
  - Tonsillar disorder [Unknown]
  - Irritable bowel syndrome [Recovered/Resolved]
  - Abdominal pain [Not Recovered/Not Resolved]
  - Oropharyngeal pain [Unknown]
  - Ovarian germ cell teratoma benign [Not Recovered/Not Resolved]
  - Nuclear magnetic resonance imaging abnormal [Unknown]

NARRATIVE: CASE EVENT DATE: 201712
